FAERS Safety Report 14501463 (Version 1)
Quarter: 2018Q1

REPORT INFORMATION
  Report Type: Spontaneous
  Country: US (occurrence: US)
  Receive Date: 20180207
  Receipt Date: 20180207
  Transmission Date: 20180509
  Serious: No
  Sender: FDA-Public Use
  Company Number: US-AMGEN-USASP2017166576

PATIENT
  Age: 73 Year
  Sex: Male
  Weight: 73.47 kg

DRUGS (1)
  1. NEULASTA [Suspect]
     Active Substance: PEGFILGRASTIM
     Indication: NEUTROPENIA
     Dosage: UNK
     Route: 058
     Dates: start: 20161021

REACTIONS (1)
  - Device dispensing error [Unknown]

NARRATIVE: CASE EVENT DATE: 20171102
